FAERS Safety Report 23894685 (Version 1)
Quarter: 2024Q2

REPORT INFORMATION
  Report Type: Spontaneous
  Country: US (occurrence: None)
  Receive Date: 20240524
  Receipt Date: 20240524
  Transmission Date: 20240715
  Serious: No
  Sender: FDA-Public Use
  Company Number: US-ROCHE-3387390

PATIENT
  Sex: Female
  Weight: 123 kg

DRUGS (4)
  1. OCREVUS [Suspect]
     Active Substance: OCRELIZUMAB
     Indication: Multiple sclerosis
     Dosage: ONGOING: YES
     Route: 042
     Dates: start: 20230710
  2. ACETAMINOPHEN [Concomitant]
     Active Substance: ACETAMINOPHEN
     Dosage: GIVEN 1 TIME
     Route: 048
     Dates: start: 20230710
  3. DIPHENHYDRAMINE [Concomitant]
     Active Substance: DIPHENHYDRAMINE
     Dosage: GIVEN 1 TIME
     Route: 048
     Dates: start: 20230710
  4. METHYLPREDNISOLONE [Concomitant]
     Active Substance: METHYLPREDNISOLONE
     Dosage: GIVEN 1 TIME
     Route: 042
     Dates: start: 20230710

REACTIONS (3)
  - Chest discomfort [Recovered/Resolved]
  - Confusional state [Recovered/Resolved]
  - Incorrect dose administered [Unknown]

NARRATIVE: CASE EVENT DATE: 20230710
